FAERS Safety Report 4838348-9 (Version None)
Quarter: 2005Q4

REPORT INFORMATION
  Report Type: 
  Country: None (occurrence: None)
  Receive Date: 20051123
  Receipt Date: 20051110
  Transmission Date: 20060501
  Serious: Yes (Other)
  Sender: FDA-Public Use
  Company Number: 2005PV003553

PATIENT
  Age: 56 Year
  Sex: Female
  Weight: 131.5431 kg

DRUGS (7)
  1. BYETTA [Suspect]
     Indication: DIABETES MELLITUS NON-INSULIN-DEPENDENT
     Dosage: SEE IMAGE
     Route: 058
     Dates: start: 20050713, end: 20050816
  2. BYETTA [Suspect]
     Indication: DIABETES MELLITUS NON-INSULIN-DEPENDENT
     Dosage: SEE IMAGE
     Route: 058
     Dates: start: 20050817, end: 20050924
  3. GLUCOPHAGE [Concomitant]
  4. NOVOLIN [Concomitant]
  5. LANTUS [Concomitant]
  6. PROVARA [Concomitant]
  7. ACCUPRIL [Concomitant]

REACTIONS (4)
  - DYSFUNCTIONAL UTERINE BLEEDING [None]
  - FOOD POISONING [None]
  - UTERINE CANCER [None]
  - WEIGHT DECREASED [None]
